FAERS Safety Report 4535002-8 (Version None)
Quarter: 2004Q4

REPORT INFORMATION
  Report Type: 
  Country: None (occurrence: None)
  Receive Date: 20041214
  Receipt Date: 20040924
  Transmission Date: 20050328
  Serious: No
  Sender: FDA-Public Use
  Company Number: 2004227225US

PATIENT
  Age: 78 Year
  Sex: Female
  Weight: 57.1 kg

DRUGS (4)
  1. BEXTRA [Suspect]
     Indication: RHEUMATOID ARTHRITIS
     Dosage: 10 MG, QD
     Dates: start: 20040716, end: 20040728
  2. PLAQUENIL [Concomitant]
  3. INDOCIN [Concomitant]
  4. THYROID TAB [Concomitant]

REACTIONS (3)
  - RASH [None]
  - SKIN DESQUAMATION [None]
  - SKIN WRINKLING [None]
